FAERS Safety Report 10725509 (Version 4)
Quarter: 2015Q3

REPORT INFORMATION
  Report Type: Spontaneous
  Country: US (occurrence: US)
  Receive Date: 20150121
  Receipt Date: 20150824
  Transmission Date: 20151125
  Serious: Yes (Other)
  Sender: FDA-Public Use
  Company Number: US-GLAXOSMITHKLINE-US2014038361

PATIENT
  Age: 64 Year
  Sex: Male

DRUGS (2)
  1. ABREVA [Suspect]
     Active Substance: DOCOSANOL
  2. ABREVA [Suspect]
     Active Substance: DOCOSANOL
     Dates: start: 20141215

REACTIONS (4)
  - Oral pain [Unknown]
  - Feeding disorder [Unknown]
  - Mouth swelling [Unknown]
  - Condition aggravated [Unknown]

NARRATIVE: CASE EVENT DATE: 20141216
